FAERS Safety Report 7973046-4 (Version None)
Quarter: 2011Q4

REPORT INFORMATION
  Report Type: 
  Country: None (occurrence: None)
  Receive Date: 20111213
  Receipt Date: 20111201
  Transmission Date: 20120403
  Serious: Yes (Other)
  Sender: FDA-Public Use
  Company Number: JP-PFIZER INC-2011239704

PATIENT
  Age: 67 Year
  Sex: Female
  Weight: 45 kg

DRUGS (17)
  1. CAMPTOSAR [Suspect]
     Indication: RECTAL CANCER
     Dosage: 250 MG/BODY (192.3 MG/M2)
     Route: 041
     Dates: start: 20110609, end: 20110818
  2. REBAMIPIDE [Concomitant]
     Indication: PROPHYLAXIS
     Dosage: 100 MG, 3X/DAY
     Route: 048
     Dates: start: 20110808, end: 20110812
  3. SCOPOLAMINE [Concomitant]
     Indication: ABDOMINAL PAIN
     Dosage: UNK
     Route: 048
     Dates: start: 20110609
  4. ISOVORIN [Suspect]
     Indication: RECTAL CANCER
     Dosage: 275 MG/BODY (211.5 MG/M2)
     Route: 041
     Dates: start: 20110609, end: 20110818
  5. ENALIN [Concomitant]
     Indication: HYPERTENSION
     Dosage: 5 MG, UNK
     Route: 048
     Dates: start: 20110609
  6. SPIRONOLACTONE [Concomitant]
     Indication: OEDEMA
     Dosage: 50 MG, 2X/DAY
     Route: 048
     Dates: start: 20110609, end: 20110622
  7. DECADRON [Concomitant]
     Indication: PREMEDICATION
     Dosage: 16.5 MG, UNK
     Route: 041
     Dates: start: 20110609, end: 20110818
  8. ACETAMINOPHEN [Concomitant]
     Indication: ANTIPYRESIS
     Dosage: 400 MG, 3X/DAY
     Route: 048
     Dates: start: 20110808, end: 20110812
  9. FLUOROURACIL [Suspect]
     Dosage: 3250 MG/BODY/D1-2 (2500 MG/M2/D1-2)
     Route: 041
     Dates: start: 20110609, end: 20110818
  10. ADALAT [Concomitant]
     Indication: HYPERTENSION
     Dosage: 40 MG, UNK
     Route: 048
     Dates: start: 20110609
  11. HANGE-SHASHIN-TO [Concomitant]
     Dosage: UNK
     Route: 048
  12. FLUOROURACIL [Suspect]
     Indication: RECTAL CANCER
     Dosage: 500 MG/BODY (384.6 MG/M2)
     Route: 040
     Dates: start: 20110609, end: 20110818
  13. DECADRON [Concomitant]
     Indication: STEROID THERAPY
     Dosage: 8 MG, 2X/DAY
     Route: 048
     Dates: start: 20110609
  14. FUROSEMIDE [Concomitant]
     Indication: OEDEMA
     Dosage: 20 MG, UNK
     Route: 048
     Dates: start: 20110609, end: 20110622
  15. SINSERON [Concomitant]
     Indication: NAUSEA
     Dosage: 8 MG, UNK
     Route: 048
     Dates: start: 20110609
  16. LOPERAMIDE HCL [Concomitant]
     Indication: DIARRHOEA
     Dosage: UNK
     Route: 048
     Dates: start: 20110609
  17. TOSUFLOXACIN TOSILATE [Concomitant]
     Indication: ANTIPYRESIS
     Dosage: 150 MG, 3X/DAY
     Route: 048
     Dates: start: 20110808, end: 20110812

REACTIONS (5)
  - NEUTROPENIA [None]
  - CORNEAL DISORDER [None]
  - VISUAL ACUITY REDUCED [None]
  - LEUKOPENIA [None]
  - HAEMOGLOBIN DECREASED [None]
